FAERS Safety Report 23987628 (Version 1)
Quarter: 2024Q2

REPORT INFORMATION
  Report Type: Spontaneous
  Country: US (occurrence: US)
  Receive Date: 20240618
  Receipt Date: 20240618
  Transmission Date: 20240716
  Serious: No
  Sender: FDA-Public Use
  Company Number: US-MIMS-CORIMC-5229

PATIENT

DRUGS (1)
  1. ADLARITY [Suspect]
     Active Substance: DONEPEZIL HYDROCHLORIDE
     Indication: Dementia Alzheimer^s type
     Dosage: 10 MG, ONCE A WEEK
     Route: 062

REACTIONS (4)
  - Adverse event [Unknown]
  - Therapeutic response shortened [Unknown]
  - Product adhesion issue [Unknown]
  - Device malfunction [Unknown]
